FAERS Safety Report 17262434 (Version 5)
Quarter: 2022Q4

REPORT INFORMATION
  Report Type: Spontaneous
  Country: US (occurrence: US)
  Receive Date: 20200113
  Receipt Date: 20221215
  Transmission Date: 20230112
  Serious: Yes (Other)
  Sender: FDA-Public Use
  Company Number: US-PFIZER INC-2018440225

PATIENT
  Age: 77 Year
  Sex: Female

DRUGS (1)
  1. PREMPRO [Suspect]
     Active Substance: ESTROGENS, CONJUGATED\MEDROXYPROGESTERONE ACETATE
     Dosage: 0.3/1.5

REACTIONS (5)
  - Thrombosis [Unknown]
  - Anxiety [Unknown]
  - Frustration tolerance decreased [Unknown]
  - Urinary tract infection [Unknown]
  - Fall [Unknown]
